FAERS Safety Report 23850765 (Version 2)
Quarter: 2024Q2

REPORT INFORMATION
  Report Type: Report from Study
  Country: JP (occurrence: JP)
  Receive Date: 20240514
  Receipt Date: 20240618
  Transmission Date: 20240716
  Serious: Yes (Death)
  Sender: FDA-Public Use
  Company Number: JP-ABBVIE-5758619

PATIENT
  Age: 86 Year
  Sex: Female
  Weight: 39 kg

DRUGS (9)
  1. RINVOQ [Suspect]
     Active Substance: UPADACITINIB
     Indication: Rheumatoid arthritis
     Dosage: 15 MILLIGRAM
     Route: 048
     Dates: start: 20210429, end: 20231221
  2. FOLIC ACID TAKEDA [Concomitant]
     Indication: Product used for unknown indication
     Dosage: 5 MILLIGRAM
     Route: 048
  3. METHOTREXATE [Concomitant]
     Active Substance: METHOTREXATE
     Indication: Rheumatoid arthritis
     Dosage: 4 MG/WEEK
  4. KETOPROFEN [Concomitant]
     Active Substance: KETOPROFEN
     Indication: Rheumatoid arthritis
     Dosage: 40 MILLIGRAM
  5. CHOLECALCIFEROL [Concomitant]
     Active Substance: CHOLECALCIFEROL
     Indication: Product used for unknown indication
     Dosage: 2 TABLET
     Route: 048
  6. CALCIUM CARBONATE [Concomitant]
     Active Substance: CALCIUM CARBONATE
     Indication: Product used for unknown indication
     Dosage: 2 TABLET?CALCIUM CARBONATE, CHOLECALCIFEROL AND MAGNESIUM CARBONATE
     Route: 048
  7. LIMAPROST [Concomitant]
     Active Substance: LIMAPROST
     Indication: Product used for unknown indication
     Dosage: 15 MICROGRAM
     Route: 048
  8. PREDNISOLONE [Concomitant]
     Active Substance: PREDNISOLONE
     Indication: Rheumatoid arthritis
     Dosage: 3 MILLIGRAM
  9. MAGNESIUM CARBONATE [Concomitant]
     Active Substance: MAGNESIUM CARBONATE
     Indication: Product used for unknown indication
     Dosage: 2 TABLET
     Route: 048

REACTIONS (2)
  - Interstitial lung disease [Fatal]
  - Vomiting [Unknown]

NARRATIVE: CASE EVENT DATE: 20231031
